FAERS Safety Report 6316305-3 (Version None)
Quarter: 2009Q3

REPORT INFORMATION
  Report Type: 
  Country: None (occurrence: None)
  Receive Date: 20090820
  Receipt Date: 20090604
  Transmission Date: 20100115
  Serious: Yes (Congenital Anomaly)
  Sender: FDA-Public Use
  Company Number: A0680644A

PATIENT
  Sex: Female
  Weight: 3.1 kg

DRUGS (6)
  1. PAXIL [Suspect]
     Indication: ANXIETY
     Dosage: 30MG PER DAY
     Dates: start: 20030301, end: 20041001
  2. PAROXETINE HCL [Suspect]
     Indication: ANXIETY
     Dosage: 30MG PER DAY
     Dates: start: 20040101, end: 20041001
  3. VITAMIN TAB [Concomitant]
  4. TYLENOL W/ CODEINE [Concomitant]
  5. BENADRYL [Concomitant]
  6. ALBUTEROL [Concomitant]

REACTIONS (4)
  - AORTIC STENOSIS [None]
  - ATRIAL SEPTAL DEFECT [None]
  - DRUG EXPOSURE DURING PREGNANCY [None]
  - PULMONARY VALVE STENOSIS [None]
